FAERS Safety Report 6707389-9 (Version None)
Quarter: 2010Q2

REPORT INFORMATION
  Report Type: 
  Country: None (occurrence: None)
  Receive Date: 20100503
  Receipt Date: 20090620
  Transmission Date: 20101027
  Serious: No
  Sender: FDA-Public Use
  Company Number: US-ASTRAZENECA-2009UW16256

PATIENT
  Age: 75 Year
  Sex: Female
  Weight: 67.1 kg

DRUGS (3)
  1. NEXIUM [Suspect]
     Indication: HERNIA
     Route: 048
     Dates: start: 20090601, end: 20090619
  2. ASPIRIN [Concomitant]
     Indication: CARDIAC DISORDER
  3. DIOVAN [Concomitant]
     Indication: HYPERTENSION

REACTIONS (3)
  - ABDOMINAL PAIN [None]
  - DIARRHOEA [None]
  - DRUG DOSE OMISSION [None]
